FAERS Safety Report 9510481 (Version 2)
Quarter: 2013Q3

REPORT INFORMATION
  Report Type: Report from Study
  Country: US (occurrence: US)
  Receive Date: 20130909
  Receipt Date: 20130909
  Transmission Date: 20140515
  Serious: Yes (Hospitalization)
  Sender: FDA-Public Use
  Company Number: US-TAKEDA-TPA2013A07203

PATIENT
  Age: 72 Year
  Sex: Female
  Weight: 122.7 kg

DRUGS (14)
  1. ALLOPURINOL [Suspect]
     Indication: HYPERURICAEMIA
     Dosage: UNK, QD
     Route: 048
     Dates: start: 20100924
  2. FEBUXOSTAT [Suspect]
     Indication: HYPERURICAEMIA
     Dosage: UNK, QD
     Route: 048
     Dates: start: 20100924
  3. HYDROCODONE W/ACETAMINOPHEN [Concomitant]
     Indication: GOUT
     Dosage: 510 MG, PRN
     Route: 048
     Dates: start: 2008
  4. LOSARTAN [Concomitant]
     Indication: HYPERTENSION
     Dosage: 100 MG, QD
     Route: 048
     Dates: start: 2008
  5. NITROGLYCERIN [Concomitant]
     Indication: ANGINA PECTORIS
     Dosage: 0.4 MG, PRN
     Route: 060
     Dates: start: 201003
  6. BISACODYL [Concomitant]
     Indication: CONSTIPATION
     Dosage: 1 DF, PRN
     Route: 048
     Dates: start: 2008
  7. CARVEDILOL [Concomitant]
     Indication: HYPERTENSION
     Dosage: 25 MG, QD
     Route: 048
     Dates: start: 2008
  8. ATORVASTATIN [Concomitant]
     Indication: DYSLIPIDAEMIA
     Dosage: 1 DF, QD
     Route: 048
     Dates: start: 20110901
  9. FUROSEMIDE [Concomitant]
     Indication: CARDIAC FAILURE CONGESTIVE
     Dosage: 20 MG, QD
     Route: 048
     Dates: start: 20111110, end: 20130521
  10. SYNTHYROID [Concomitant]
     Indication: HYPOTHYROIDISM
     Dosage: 100 ?G, QD
     Route: 048
     Dates: start: 20120301
  11. GLIMEPRIDE [Concomitant]
     Indication: TYPE 2 DIABETES MELLITUS
     Dosage: 2 MG, QD
     Route: 048
     Dates: start: 20110901
  12. ASPIRIN [Concomitant]
     Indication: CARDIOVASCULAR EVENT PROPHYLAXIS
     Dosage: 81 MG, PRN
     Route: 048
     Dates: start: 20120609
  13. NEXIUM [Concomitant]
     Indication: PROPHYLAXIS
     Dosage: 1 DF, QD
     Route: 048
     Dates: start: 20120831
  14. VITAMIN D2 [Concomitant]
     Indication: MEDICAL DIET
     Dosage: 50000 IU, 1/WEEK
     Route: 048
     Dates: start: 20121010

REACTIONS (1)
  - Coronary artery occlusion [Recovered/Resolved]
